FAERS Safety Report 23235367 (Version 2)
Quarter: 2023Q4

REPORT INFORMATION
  Report Type: Spontaneous
  Country: US (occurrence: US)
  Receive Date: 20231128
  Receipt Date: 20231205
  Transmission Date: 20240109
  Serious: Yes (Life-Threatening)
  Sender: FDA-Public Use
  Company Number: US-PFIZER INC-PV202300190734

PATIENT
  Age: 23 Year
  Sex: Male
  Weight: 66 kg

DRUGS (12)
  1. PROPOFOL [Suspect]
     Active Substance: PROPOFOL
     Indication: General anaesthesia
     Dosage: 300 MG (IN DIVIDED DOSES)
     Route: 042
  2. PROPOFOL [Suspect]
     Active Substance: PROPOFOL
     Dosage: 135 UG/KG/MIN
     Route: 042
  3. PROPOFOL [Suspect]
     Active Substance: PROPOFOL
     Dosage: 50UG/KG/MIN
     Route: 042
  4. FENTANYL [Concomitant]
     Active Substance: FENTANYL\FENTANYL CITRATE
     Indication: General anaesthesia
     Dosage: 50 UG
     Route: 042
  5. FENTANYL [Concomitant]
     Active Substance: FENTANYL\FENTANYL CITRATE
     Dosage: INTERMITTENT BOLUSES
  6. LIDOCAINE [Concomitant]
     Active Substance: LIDOCAINE
     Indication: General anaesthesia
     Dosage: 100 MG
     Route: 042
  7. LIDOCAINE [Concomitant]
     Active Substance: LIDOCAINE
     Dosage: 2 MG/KG/HR
     Route: 042
  8. ROCURONIUM [Concomitant]
     Active Substance: ROCURONIUM BROMIDE
     Indication: General anaesthesia
     Dosage: 50 MG
     Route: 042
  9. MAGNESIUM [Concomitant]
     Active Substance: MAGNESIUM
     Indication: General anaesthesia
     Dosage: 6 MG/KG/HR
     Route: 042
  10. MAGNESIUM [Concomitant]
     Active Substance: MAGNESIUM
     Dosage: 30 MG/KG/HR, (BOLUS OVER 30 MIN)
     Route: 042
  11. KETAMINE [Concomitant]
     Active Substance: KETAMINE
     Indication: General anaesthesia
     Dosage: 3 UG/KG/MIN
     Route: 042
  12. KETAMINE [Concomitant]
     Active Substance: KETAMINE
     Dosage: 10 UG/KG/MIN
     Route: 042

REACTIONS (1)
  - Myoclonus [Recovered/Resolved]
